FAERS Safety Report 8367165-0 (Version None)
Quarter: 2012Q2

REPORT INFORMATION
  Report Type: 
  Country: None (occurrence: None)
  Receive Date: 20120517
  Receipt Date: 20120508
  Transmission Date: 20120825
  Serious: No
  Sender: FDA-Public Use
  Company Number: US-B.I. PHARMACEUTICALS,INC./RIDGEFIELD-2011-BP-15168BP

PATIENT
  Sex: Male

DRUGS (8)
  1. DESMOPRESSIN ACETATE [Concomitant]
     Dosage: 0.2 MG
  2. PRADAXA [Suspect]
     Indication: ATRIAL FIBRILLATION
     Dosage: 300 MG
     Route: 048
     Dates: start: 20110523, end: 20110611
  3. SINGULAIR [Concomitant]
     Dosage: 10 MG
  4. SIMVASTATIN [Concomitant]
     Dosage: 80 MG
  5. PRADAXA [Suspect]
     Dosage: 150 MG
     Route: 048
     Dates: start: 20110101, end: 20111201
  6. CARTIA XT [Concomitant]
     Dosage: 240 MG
  7. DOXAZOSIN MESYLATE [Concomitant]
     Dosage: 8 MG
  8. OXYBUTYNIN [Concomitant]
     Dosage: 0.5 MG

REACTIONS (3)
  - BLOOD COUNT ABNORMAL [None]
  - MELAENA [None]
  - HAEMATOCHEZIA [None]
